FAERS Safety Report 12458098 (Version 1)
Quarter: 2016Q2

REPORT INFORMATION
  Report Type: Spontaneous
  Country: US (occurrence: GB)
  Receive Date: 20160613
  Receipt Date: 20160613
  Transmission Date: 20160815
  Serious: Yes (Death)
  Sender: FDA-Public Use
  Company Number: GB-HETERO LABS LTD-1053713

PATIENT
  Age: 43 Year
  Sex: Female

DRUGS (4)
  1. SUSTIVA [Suspect]
     Active Substance: EFAVIRENZ
  2. LAMIVUDINE. [Suspect]
     Active Substance: LAMIVUDINE
     Indication: PRODUCT USED FOR UNKNOWN INDICATION
  3. COTRIMOXAZOLE [Suspect]
     Active Substance: SULFAMETHOXAZOLE\TRIMETHOPRIM
  4. ABACAVIR. [Suspect]
     Active Substance: ABACAVIR
     Route: 066

REACTIONS (1)
  - Death [Fatal]
